FAERS Safety Report 7193710-7 (Version None)
Quarter: 2010Q4

REPORT INFORMATION
  Report Type: 
  Country: None (occurrence: None)
  Receive Date: 20101223
  Receipt Date: 20100909
  Transmission Date: 20110411
  Serious: Yes (Other)
  Sender: FDA-Public Use
  Company Number: US-AMGEN-KDL437138

PATIENT

DRUGS (1)
  1. ENBREL [Suspect]
     Indication: PSORIASIS
     Dosage: UNK UNK, QWK
     Dates: start: 20020101

REACTIONS (2)
  - PSORIASIS [None]
  - THERAPEUTIC RESPONSE DECREASED [None]
